FAERS Safety Report 16734635 (Version 1)
Quarter: 2019Q4

REPORT INFORMATION
  Report Type: Spontaneous
  Country: US (occurrence: US)
  Receive Date: 20190822
  Receipt Date: 20190822
  Transmission Date: 20200122
  Serious: Yes (Hospitalization, Disabling, Other)
  Sender: FDA-Public Use
  Company Number: None

PATIENT
  Age: 31 Year
  Sex: Female
  Weight: 92.25 kg

DRUGS (1)
  1. HALOPERIDOL DECANOATE. [Suspect]
     Active Substance: HALOPERIDOL DECANOATE
     Indication: PSYCHOTIC DISORDER
     Dosage: ?          QUANTITY:1 INJECTION(S);OTHER FREQUENCY:1-3 HOURS;?
     Route: 030

REACTIONS (10)
  - Ovarian failure [None]
  - Drug dependence [None]
  - Victim of sexual abuse [None]
  - Hot flush [None]
  - Weight increased [None]
  - Osteoporosis postmenopausal [None]
  - Overdose [None]
  - Insomnia [None]
  - Menopause [None]
  - Loss of consciousness [None]

NARRATIVE: CASE EVENT DATE: 19980904
